FAERS Safety Report 12597976 (Version 3)
Quarter: 2016Q4

REPORT INFORMATION
  Report Type: Spontaneous
  Country: US (occurrence: US)
  Receive Date: 20160726
  Receipt Date: 20161010
  Transmission Date: 20170207
  Serious: No
  Sender: FDA-Public Use
  Company Number: US-TEVA-677954USA

PATIENT
  Age: 48 Year
  Sex: Female
  Weight: 59.02 kg

DRUGS (1)
  1. JOLESSA [Suspect]
     Active Substance: ETHINYL ESTRADIOL\LEVONORGESTREL
     Indication: CONTRACEPTION
     Dosage: 1 DOSAGE FORMS DAILY; 1 DF= 0.15 MG LEVONORGESTREL + 0.03 MG ETHINYL ESTRADIOL
     Route: 048
     Dates: start: 20160701, end: 20160714

REACTIONS (4)
  - Rash pruritic [Recovered/Resolved]
  - Rash [Recovered/Resolved]
  - Scar [Unknown]
  - Skin disorder [Recovered/Resolved]

NARRATIVE: CASE EVENT DATE: 20160704
